FAERS Safety Report 6016118-6 (Version None)
Quarter: 2008Q4

REPORT INFORMATION
  Report Type: 
  Country: None (occurrence: None)
  Receive Date: 20081216
  Receipt Date: 20080212
  Transmission Date: 20090506
  Serious: Yes (Hospitalization)
  Sender: FDA-Public Use
  Company Number: US-WYE-H02586208

PATIENT
  Sex: Female

DRUGS (7)
  1. EFFEXOR XR [Suspect]
     Indication: DEPRESSION
     Dosage: SEE IMAGE
     Route: 048
     Dates: start: 20060101, end: 20060101
  2. EFFEXOR XR [Suspect]
     Indication: DEPRESSION
     Dosage: SEE IMAGE
     Route: 048
     Dates: start: 20060901, end: 20060101
  3. EFFEXOR XR [Suspect]
     Indication: DEPRESSION
     Dosage: SEE IMAGE
     Route: 048
     Dates: start: 20060101, end: 20080101
  4. EFFEXOR XR [Suspect]
     Indication: DEPRESSION
     Dosage: SEE IMAGE
     Route: 048
     Dates: start: 20080101, end: 20080101
  5. SUBOXONE [Suspect]
     Dosage: 16 MG 1X PER 1 DAY ; OVERDOSE AMOUNT 16 MG
     Dates: start: 20080101, end: 20080101
  6. XANAX [Suspect]
     Dosage: 1 MG 4X PER 1 DAY ; OVERDOSE AMOUNT 40 MG
     Dates: start: 20080101, end: 20080101
  7. EXCEDRIN (ACETYLSALICYLIC ACID/CAFFEINE/PARACETAMOL/SALICYLAMIDE) [Concomitant]

REACTIONS (9)
  - ABNORMAL BEHAVIOUR [None]
  - AMNESIA [None]
  - ANXIETY [None]
  - DRUG WITHDRAWAL SYNDROME [None]
  - FEELING ABNORMAL [None]
  - INSOMNIA [None]
  - NERVOUSNESS [None]
  - OVERDOSE [None]
  - STRESS [None]
